FAERS Safety Report 4508921-6 (Version None)
Quarter: 2004Q4

REPORT INFORMATION
  Report Type: 
  Country: None (occurrence: None)
  Receive Date: 20041123
  Receipt Date: 20010521
  Transmission Date: 20050328
  Serious: Yes (Other)
  Sender: FDA-Public Use
  Company Number: FR-GLAXOSMITHKLINE-B0109143A

PATIENT
  Age: 39 Year
  Sex: Male
  Weight: 64 kg

DRUGS (5)
  1. LAMIVUDINE [Suspect]
     Indication: HIV INFECTION
     Dosage: 300MG PER DAY
     Route: 048
     Dates: start: 19980101, end: 20010414
  2. ABACAVIR SULPHATE [Suspect]
     Indication: HIV INFECTION
     Dosage: 300MG PER DAY
     Route: 048
     Dates: start: 20010414
  3. STAVUDINE [Suspect]
     Indication: HIV INFECTION
     Route: 048
     Dates: start: 19980101, end: 20010414
  4. EFAVIRENZ [Suspect]
     Indication: HIV INFECTION
     Route: 048
     Dates: start: 19990901
  5. INDINAVIR [Concomitant]
     Indication: HIV INFECTION
     Route: 048
     Dates: start: 19980101, end: 19990901

REACTIONS (6)
  - CYTOLYTIC HEPATITIS [None]
  - HEADACHE [None]
  - HEPATITIS C [None]
  - HYPERURICAEMIA [None]
  - PRODUCTIVE COUGH [None]
  - THROAT IRRITATION [None]
